FAERS Safety Report 7964906-9 (Version None)
Quarter: 2011Q4

REPORT INFORMATION
  Report Type: 
  Country: None (occurrence: None)
  Receive Date: 20111208
  Receipt Date: 20111128
  Transmission Date: 20120403
  Serious: Yes (Hospitalization)
  Sender: FDA-Public Use
  Company Number: PHHY2011JP104033

PATIENT
  Age: 89 Year
  Sex: Male

DRUGS (9)
  1. EXELON [Suspect]
     Indication: DEMENTIA ALZHEIMER'S TYPE
     Dosage: 4.5 MG, DAILY
     Route: 062
  2. MEMANTINE HYDROCHLORIDE [Concomitant]
     Dosage: 20 MG
  3. ALLOPURINOL [Concomitant]
     Dosage: 1 DF
  4. PLETAL [Suspect]
     Dosage: 100 MG, UNK
     Dates: end: 20111125
  5. ALDACTONE [Concomitant]
     Dosage: 25 MG
  6. LASIX [Concomitant]
     Dosage: 10 MG
  7. GRAMALIL [Concomitant]
     Dosage: 25 MG
  8. EXELON [Suspect]
     Dosage: 9 MG
     Route: 062
  9. LASIX [Concomitant]
     Dosage: 20 MG

REACTIONS (1)
  - BLOOD PRESSURE DECREASED [None]
